FAERS Safety Report 4723228-X (Version None)
Quarter: 2005Q3

REPORT INFORMATION
  Report Type: 
  Country: None (occurrence: None)
  Receive Date: 20050725
  Receipt Date: 20050713
  Transmission Date: 20060218
  Serious: Yes (Hospitalization, Other)
  Sender: FDA-Public Use
  Company Number: GB-JNJFOC-20050104426

PATIENT
  Sex: Female
  Weight: 65 kg

DRUGS (4)
  1. INFLIXIMAB [Suspect]
     Indication: RELAPSING POLYCHONDRITIS
     Route: 042
  2. INFLIXIMAB [Suspect]
     Dosage: 4 INFUSIONS
     Route: 042
  3. METHOTREXATE [Concomitant]
     Route: 048
  4. FOLIC ACID [Concomitant]
     Route: 048

REACTIONS (9)
  - ANTINUCLEAR ANTIBODY POSITIVE [None]
  - DEPRESSION [None]
  - DNA ANTIBODY POSITIVE [None]
  - FATIGUE [None]
  - LUPUS-LIKE SYNDROME [None]
  - NECK PAIN [None]
  - PAIN [None]
  - RHEUMATOID FACTOR INCREASED [None]
  - SHOULDER PAIN [None]
